FAERS Safety Report 4463314-5 (Version None)
Quarter: 2004Q3

REPORT INFORMATION
  Report Type: 
  Country: None (occurrence: None)
  Receive Date: 20040930
  Receipt Date: 20040906
  Transmission Date: 20050211
  Serious: Yes (Hospitalization)
  Sender: FDA-Public Use
  Company Number: CH-BRISTOL-MYERS SQUIBB COMPANY-12693453

PATIENT
  Sex: Female

DRUGS (6)
  1. PRAVASTATIN SODIUM [Suspect]
     Dosage: DOSE WAS DECREASED TO 20MG/DAY
     Route: 048
  2. AMARYL [Suspect]
  3. AUGMENTIN [Suspect]
  4. ACTOS [Concomitant]
  5. APROVEL [Concomitant]
  6. ASPIRIN [Concomitant]

REACTIONS (7)
  - BLOOD CREATINE PHOSPHOKINASE INCREASED [None]
  - DELIRIUM [None]
  - HALLUCINATION, VISUAL [None]
  - HEPATIC STEATOSIS [None]
  - HYPOGLYCAEMIA [None]
  - PNEUMONIA [None]
  - RASH [None]
